FAERS Safety Report 4330047-5 (Version None)
Quarter: 2004Q1

REPORT INFORMATION
  Report Type: 
  Country: None (occurrence: None)
  Receive Date: 20040329
  Receipt Date: 20040309
  Transmission Date: 20041129
  Serious: Yes (Hospitalization)
  Sender: FDA-Public Use
  Company Number: F01200400481

PATIENT
  Age: 73 Year
  Sex: Male

DRUGS (10)
  1. OXALIPLATIN [Suspect]
     Indication: COLORECTAL CANCER
     Dosage: 181 MG Q2W INTRAVENOUS NOS
     Route: 042
     Dates: start: 20040224, end: 20040224
  2. FLUOROURACIL [Suspect]
     Dosage: 852 MG BOLUS THEN 4112 MG AS 46 HOURS INFUSION Q2W INTRAVENOUS NOS
     Route: 042
     Dates: start: 20040224, end: 20040224
  3. LEUCOVORIN CALCIUM [Suspect]
     Dosage: 350 MG Q2W INTRAVENOUS NOS
     Route: 042
     Dates: start: 20040224, end: 20040224
  4. AVASTIN [Suspect]
     Dosage: 5 MG/KG OVER 30-90 MINUTES IV INFUSION ON DAY 1 Q2W INTRAVENOUS NOS
     Route: 042
     Dates: start: 20040209, end: 20040209
  5. COUMADIN [Concomitant]
  6. SOTALOL HCL [Concomitant]
  7. PROCALAMINE [Concomitant]
  8. INTRALIPIDS [Concomitant]
  9. PRILOSEC [Concomitant]
  10. DARVON (DEXTROPROPOXYPHENE HYDROCHLORIDE), COMPAZINE (PROCHLORPERAZINE [Concomitant]

REACTIONS (10)
  - ASTHENIA [None]
  - ATRIAL FIBRILLATION [None]
  - CONFUSIONAL STATE [None]
  - DEHYDRATION [None]
  - DIZZINESS POSTURAL [None]
  - HALLUCINATION, VISUAL [None]
  - HYPOXIA [None]
  - MALNUTRITION [None]
  - METABOLIC DISORDER [None]
  - PAIN IN EXTREMITY [None]
